FAERS Safety Report 5027197-7 (Version None)
Quarter: 2006Q2

REPORT INFORMATION
  Report Type: 
  Country: None (occurrence: None)
  Receive Date: 20060501
  Receipt Date: 20060203
  Transmission Date: 20061013
  Serious: No
  Sender: FDA-Public Use
  Company Number: 200610660BWH

PATIENT
  Age: 43 Year
  Sex: Male

DRUGS (1)
  1. NEXAVAR [Suspect]
     Dosage: 400 MG BID ORAL
     Route: 048
     Dates: start: 20060118

REACTIONS (6)
  - BLISTER [None]
  - ERYTHEMA [None]
  - EYE OEDEMA [None]
  - PAIN IN EXTREMITY [None]
  - RASH [None]
  - SWELLING FACE [None]
